FAERS Safety Report 8334321-7 (Version None)
Quarter: 2012Q2

REPORT INFORMATION
  Report Type: 
  Country: None (occurrence: None)
  Receive Date: 20120503
  Receipt Date: 20120423
  Transmission Date: 20120825
  Serious: Yes (Other)
  Sender: FDA-Public Use
  Company Number: RS-TEVA-335536ISR

PATIENT
  Sex: Male

DRUGS (2)
  1. AZITHROMYCIN [Suspect]
     Indication: RESPIRATORY TRACT INFECTION
     Route: 048
     Dates: start: 20111024, end: 20111026
  2. DAKTANOL, ORAL GEL [Concomitant]
     Indication: CANDIDIASIS
     Route: 048
     Dates: start: 20111024, end: 20111026

REACTIONS (6)
  - BRAIN OEDEMA [None]
  - CONFUSIONAL STATE [None]
  - INSOMNIA [None]
  - DYSPNOEA [None]
  - CHEST PAIN [None]
  - SHOCK [None]
